FAERS Safety Report 4462609-9 (Version None)
Quarter: 2004Q3

REPORT INFORMATION
  Report Type: 
  Country: None (occurrence: None)
  Receive Date: 20040928
  Receipt Date: 20040913
  Transmission Date: 20050211
  Serious: Yes (Other)
  Sender: FDA-Public Use
  Company Number: 2004-09-0034

PATIENT
  Age: 11 Year
  Sex: Female
  Weight: 33 kg

DRUGS (2)
  1. CLARITIN [Suspect]
     Indication: RHINITIS ALLERGIC
     Dosage: *5 MG QD ORAL
     Route: 048
     Dates: start: 20040419
  2. BECONASE [Suspect]
     Dosage: NASAL SPRAY
     Route: 045

REACTIONS (3)
  - ABDOMINAL PAIN [None]
  - GASTROINTESTINAL DISORDER [None]
  - HENOCH-SCHONLEIN PURPURA [None]
